FAERS Safety Report 15402287 (Version 1)
Quarter: 2018Q3

REPORT INFORMATION
  Report Type: Spontaneous
  Country: PK (occurrence: PK)
  Receive Date: 20180919
  Receipt Date: 20180919
  Transmission Date: 20181010
  Serious: Yes (Other)
  Sender: FDA-Public Use
  Company Number: PK-ACCORD-071668

PATIENT
  Age: 2 Year
  Sex: Female

DRUGS (3)
  1. FOLIC ACID. [Suspect]
     Active Substance: FOLIC ACID
     Indication: SIDEROBLASTIC ANAEMIA
  2. CYANOCOBALAMIN. [Suspect]
     Active Substance: CYANOCOBALAMIN
     Indication: SIDEROBLASTIC ANAEMIA
  3. PYRIDOXINE [Suspect]
     Active Substance: PYRIDOXINE
     Indication: SIDEROBLASTIC ANAEMIA

REACTIONS (3)
  - Drug ineffective [Unknown]
  - Wolfram syndrome [Recovering/Resolving]
  - Anaemia megaloblastic [Recovering/Resolving]
